FAERS Safety Report 16628267 (Version 1)
Quarter: 2019Q3

REPORT INFORMATION
  Report Type: Spontaneous
  Country: US (occurrence: US)
  Receive Date: 20190724
  Receipt Date: 20190724
  Transmission Date: 20191004
  Serious: No
  Sender: FDA-Public Use
  Company Number: None

PATIENT
  Age: 56 Year
  Sex: Female
  Weight: 94.05 kg

DRUGS (2)
  1. LEVOTHYROXINE, 50 MCG TABLET [Suspect]
     Active Substance: LEVOTHYROXINE SODIUM
     Indication: AUTOIMMUNE THYROIDITIS
     Dosage: ?          QUANTITY:1 TABLET(S);?
     Route: 048
     Dates: start: 20190706, end: 20190720
  2. SELENIUM [Concomitant]
     Active Substance: SELENIUM

REACTIONS (6)
  - Diarrhoea [None]
  - Joint stiffness [None]
  - Rash [None]
  - Peripheral swelling [None]
  - Erythema [None]
  - Pain in extremity [None]

NARRATIVE: CASE EVENT DATE: 20190711
